FAERS Safety Report 21800921 (Version 1)
Quarter: 2022Q4

REPORT INFORMATION
  Report Type: Spontaneous
  Country: BR (occurrence: None)
  Receive Date: 20221230
  Receipt Date: 20221230
  Transmission Date: 20230112
  Serious: Yes (Other)
  Sender: FDA-Public Use
  Company Number: 2022A412863

PATIENT
  Age: 81 Year
  Sex: Female

DRUGS (6)
  1. ROSUVASTATIN [Suspect]
     Active Substance: ROSUVASTATIN
     Route: 048
  2. BRILINTA [Suspect]
     Active Substance: TICAGRELOR
     Indication: Infarction
     Route: 048
     Dates: start: 20221212
  3. LOSARTAN POTASSIUM [Concomitant]
     Active Substance: LOSARTAN POTASSIUM
  4. ASPIRIN [Concomitant]
     Active Substance: ASPIRIN
  5. DESVENLAFAXINE SUCCINATE [Concomitant]
     Active Substance: DESVENLAFAXINE SUCCINATE
  6. MEMANTINE HYDROCHLORIDE [Concomitant]
     Active Substance: MEMANTINE HYDROCHLORIDE

REACTIONS (3)
  - Myocardial infarction [Unknown]
  - Somnolence [Not Recovered/Not Resolved]
  - Diarrhoea [Not Recovered/Not Resolved]
